FAERS Safety Report 23572906 (Version 1)
Quarter: 2024Q1

REPORT INFORMATION
  Report Type: Report from Study
  Country: US (occurrence: US)
  Receive Date: 20240227
  Receipt Date: 20240227
  Transmission Date: 20240410
  Serious: Yes (Death)
  Sender: FDA-Public Use
  Company Number: US-ABBVIE-5655851

PATIENT
  Sex: Male

DRUGS (11)
  1. VENCLEXTA [Suspect]
     Active Substance: VENETOCLAX
     Indication: Chronic lymphocytic leukaemia
     Dosage: ONE PACKAGE ORALLY AS DIRECTED ON STARTER PACK. TAKE WITH WATER AND A MEAL AT THE SAME TIME DAILY...
     Route: 048
  2. VENCLEXTA [Suspect]
     Active Substance: VENETOCLAX
     Indication: Chronic lymphocytic leukaemia
     Dosage: TAKE WHOLE WITH WATER AND A MEAL, AT APPROXIMATELY THE SAME TIME EACH DAY?FORM STRENGTH: 100 MG
     Route: 048
  3. VENCLEXTA [Suspect]
     Active Substance: VENETOCLAX
     Indication: Chronic lymphocytic leukaemia
     Dosage: ONE PACKAGE ORALLY AS DIRECTED ON STARTER PACK. TAKE WITH WATER AND A MEAL AT THE SAME TIME DAILY...
     Route: 048
  4. VENCLEXTA [Suspect]
     Active Substance: VENETOCLAX
     Indication: Chronic lymphocytic leukaemia
     Dosage: ONE PACKAGE ORALLY AS DIRECTED ON STARTER PACK. TAKE WITH WATER AND A MEAL AT THE SAME TIME DAILY...
     Route: 048
  5. Viatmin B12 [Concomitant]
     Indication: Product used for unknown indication
     Route: 048
  6. ATORVASTATIN [Concomitant]
     Active Substance: ATORVASTATIN
     Indication: Product used for unknown indication
     Route: 048
  7. BENZONATATE [Concomitant]
     Active Substance: BENZONATATE
     Indication: Cough
     Dosage: TIME INTERVAL: 0.33333333 DAYS
     Route: 048
  8. LISINOPRIL [Concomitant]
     Active Substance: LISINOPRIL
     Indication: Product used for unknown indication
     Route: 048
  9. ACETAMINOPHEN\HYDROCODONE [Concomitant]
     Active Substance: ACETAMINOPHEN\HYDROCODONE
     Indication: Product used for unknown indication
     Dosage: 5 MG TAB-325 MG TAB?1 IN EVERY 8HRS PRN
     Route: 048
  10. TESTOSTERONE CYPIONATE [Concomitant]
     Active Substance: TESTOSTERONE CYPIONATE
     Indication: Product used for unknown indication
     Dosage: 200 MG / ML OIL. 75 MG IM QWK
     Route: 030
  11. COMPAZINE [Concomitant]
     Active Substance: PROCHLORPERAZINE MALEATE
     Indication: Nausea
     Dosage: 1 TAB PO 30 MIN PRIOR TO VNX TO PREVENT NAUSEA AND PO EVERY 6HRS PRN NAUSEA?FORM STRENGTH: 10 MG
     Route: 048

REACTIONS (1)
  - Death [Fatal]
